FAERS Safety Report 8209181-5 (Version None)
Quarter: 2012Q1

REPORT INFORMATION
  Report Type: 
  Country: None (occurrence: None)
  Receive Date: 20120314
  Receipt Date: 20120305
  Transmission Date: 20120608
  Serious: Yes (Hospitalization)
  Sender: FDA-Public Use
  Company Number: US-BAYER-2011-079913

PATIENT
  Age: 44 Year
  Sex: Female
  Weight: 163.72 kg

DRUGS (20)
  1. YAZ [Suspect]
     Indication: MENSTRUATION IRREGULAR
  2. IBUPROFEN [Concomitant]
  3. NYQUIL [Concomitant]
  4. FLEXERIL [Concomitant]
  5. YAZ [Suspect]
     Indication: PREMENSTRUAL SYNDROME
     Dosage: UNK
     Route: 048
     Dates: start: 20070301, end: 20071001
  6. CYCLOBENZAPRINE HCL [Concomitant]
  7. POTASSIUM [Concomitant]
  8. MOBIC [Concomitant]
  9. MELOXICAM [Concomitant]
     Dosage: UNK
     Dates: start: 20080101
  10. DIOVAN [Concomitant]
     Dosage: UNK
     Dates: start: 20090101
  11. CELEXA [Concomitant]
  12. FUROSEMIDE [Concomitant]
  13. LORTAB [Concomitant]
     Indication: PAIN
     Dosage: UNK
     Dates: start: 19900101, end: 20110101
  14. CELEBREX [Concomitant]
  15. POTASSIUM CHLORIDE [Concomitant]
  16. POTASSIUM CHLORIDE [Concomitant]
     Indication: BLOOD POTASSIUM ABNORMAL
     Dosage: UNK
     Dates: start: 20090101
  17. LASIX [Concomitant]
     Dosage: UNK
     Dates: start: 19950101
  18. MOTRIN [Concomitant]
  19. ABILIFY [Concomitant]
  20. VISTARIL [Concomitant]

REACTIONS (5)
  - BILIARY COLIC [None]
  - EMOTIONAL DISTRESS [None]
  - CHOLELITHIASIS [None]
  - ANXIETY [None]
  - ABDOMINAL PAIN UPPER [None]
